FAERS Safety Report 8175381-6 (Version None)
Quarter: 2012Q1

REPORT INFORMATION
  Report Type: 
  Country: None (occurrence: None)
  Receive Date: 20120229
  Receipt Date: 20120223
  Transmission Date: 20120608
  Serious: Yes (Death, Hospitalization)
  Sender: FDA-Public Use
  Company Number: TH-PFIZER INC-2012042502

PATIENT
  Age: 50 Year
  Sex: Female

DRUGS (3)
  1. MEROPENEM [Suspect]
     Dosage: UNK
     Route: 042
     Dates: end: 20120201
  2. REVATIO [Suspect]
     Indication: PULMONARY ARTERIAL HYPERTENSION
     Dosage: 20 MG, 3X/DAY
     Route: 048
     Dates: start: 20120202
  3. VITAMIN B COMPLEX CAP [Concomitant]
     Indication: SUPPLEMENTATION THERAPY
     Dosage: 1 TABLET, 3 TIMES A DAY
     Route: 048

REACTIONS (3)
  - SEPSIS [None]
  - STEVENS-JOHNSON SYNDROME [None]
  - DYSPNOEA [None]
